FAERS Safety Report 11874020 (Version 1)
Quarter: 2015Q4

REPORT INFORMATION
  Report Type: Spontaneous
  Country: GR (occurrence: GR)
  Receive Date: 20151229
  Receipt Date: 20151229
  Transmission Date: 20160305
  Serious: Yes (Hospitalization)
  Sender: FDA-Public Use
  Company Number: GR-AJANTA PHARMA USA INC.-1045960

PATIENT
  Age: 33 Year
  Sex: Male

DRUGS (4)
  1. RISPERIDONE. [Suspect]
     Active Substance: RISPERIDONE
     Indication: DEPRESSION
  2. ALPRAZOLAM. [Suspect]
     Active Substance: ALPRAZOLAM
  3. CLOMIPRAMINE HYDROCHLORIDE. [Suspect]
     Active Substance: CLOMIPRAMINE HYDROCHLORIDE
  4. MIRTAZAPINE. [Suspect]
     Active Substance: MIRTAZAPINE

REACTIONS (2)
  - Drug interaction [Recovered/Resolved]
  - Serotonin syndrome [Unknown]

NARRATIVE: CASE EVENT DATE: 20151114
